FAERS Safety Report 26191976 (Version 1)
Quarter: 2025Q4

REPORT INFORMATION
  Report Type: Spontaneous
  Country: US (occurrence: None)
  Receive Date: 20251222
  Receipt Date: 20251222
  Transmission Date: 20260117
  Serious: Yes (Other)
  Sender: FDA-CTU
  Company Number: None

PATIENT
  Age: 32 Year
  Sex: Female

DRUGS (2)
  1. BUPRENORPHINE HYDROCHLORIDE\NALOXONE [Suspect]
     Active Substance: BUPRENORPHINE HYDROCHLORIDE\NALOXONE
     Indication: Drug use disorder
     Dosage: OTHER QUANTITY : 2 AN;?FREQUENCY : DAILY;
     Route: 060
     Dates: start: 20240123, end: 20240530
  2. BUPRENORPHINE HYDROCHLORIDE\NALOXONE [Suspect]
     Active Substance: BUPRENORPHINE HYDROCHLORIDE\NALOXONE
     Indication: Dependence

REACTIONS (4)
  - Withdrawal syndrome [None]
  - Drug ineffective [None]
  - Treatment noncompliance [None]
  - Nausea [None]

NARRATIVE: CASE EVENT DATE: 20240530
